FAERS Safety Report 6668685-7 (Version None)
Quarter: 2010Q2

REPORT INFORMATION
  Report Type: 
  Country: None (occurrence: None)
  Receive Date: 20100406
  Receipt Date: 20100325
  Transmission Date: 20101027
  Serious: Yes (Hospitalization, Other)
  Sender: FDA-Public Use
  Company Number: PHHY2009TW61048

PATIENT
  Sex: Male

DRUGS (1)
  1. EXJADE [Suspect]
     Dosage: UNK
     Dates: end: 20091101

REACTIONS (4)
  - FATIGUE [None]
  - HAEMOSIDEROSIS [None]
  - PALPITATIONS [None]
  - TREATMENT NONCOMPLIANCE [None]
